FAERS Safety Report 14881341 (Version 1)
Quarter: 2018Q2

REPORT INFORMATION
  Report Type: Spontaneous
  Country: CA (occurrence: CA)
  Receive Date: 20180511
  Receipt Date: 20180511
  Transmission Date: 20180711
  Serious: Yes (Other)
  Sender: FDA-Public Use
  Company Number: CA-PFIZER INC-2017196828

PATIENT
  Age: 69 Year
  Sex: Female

DRUGS (7)
  1. XELJANZ [Suspect]
     Active Substance: TOFACITINIB CITRATE
     Dosage: 5 MG, 2X/DAY
     Route: 048
     Dates: start: 2017, end: 201705
  2. XELJANZ [Suspect]
     Active Substance: TOFACITINIB CITRATE
     Dosage: 5 MG, 2X/DAY
     Route: 048
     Dates: start: 201709, end: 201804
  3. XELJANZ [Suspect]
     Active Substance: TOFACITINIB CITRATE
     Dosage: 5 MG, 2X/DAY
     Route: 048
     Dates: start: 2018
  4. XELJANZ [Suspect]
     Active Substance: TOFACITINIB CITRATE
     Dosage: 5 MG, 1X/DAY FOR FIRST WEEK
     Route: 048
     Dates: start: 20170725, end: 2017
  5. SULFASALAZINE. [Suspect]
     Active Substance: SULFASALAZINE
     Indication: RHEUMATOID ARTHRITIS
     Dosage: 1500 MG, TWICE A DAY
     Route: 048
  6. XELJANZ [Suspect]
     Active Substance: TOFACITINIB CITRATE
     Indication: RHEUMATOID ARTHRITIS
     Dosage: 5 MG, TWICE A DAY
     Route: 048
     Dates: start: 20170424, end: 201705
  7. ALENDRONATE [Concomitant]
     Active Substance: ALENDRONATE SODIUM
     Dosage: UNK

REACTIONS (12)
  - Disease recurrence [Unknown]
  - Drug effect incomplete [Unknown]
  - Fatigue [Not Recovered/Not Resolved]
  - Conjunctival haemorrhage [Recovering/Resolving]
  - Headache [Recovered/Resolved]
  - Localised infection [Unknown]
  - Nasopharyngitis [Not Recovered/Not Resolved]
  - Influenza [Recovering/Resolving]
  - Asthenia [Not Recovered/Not Resolved]
  - Viral infection [Recovered/Resolved]
  - Inappropriate schedule of drug administration [Unknown]
  - Cough [Recovering/Resolving]

NARRATIVE: CASE EVENT DATE: 20170424
